FAERS Safety Report 4393221-8 (Version None)
Quarter: 2004Q3

REPORT INFORMATION
  Report Type: 
  Country: None (occurrence: None)
  Receive Date: 20040702
  Receipt Date: 20040622
  Transmission Date: 20050211
  Serious: Yes (Hospitalization)
  Sender: FDA-Public Use
  Company Number: 2004PK00895

PATIENT
  Age: 49 Year
  Sex: Male

DRUGS (4)
  1. IRESSA [Suspect]
     Indication: NON-SMALL CELL LUNG CANCER
     Dosage: 250 MG DAILY PO
     Route: 048
     Dates: start: 20040408
  2. MORPHINE SULFATE [Concomitant]
  3. ECOPROFEN [Concomitant]
  4. MAGNESIUM [Concomitant]

REACTIONS (8)
  - DIARRHOEA [None]
  - ELECTROLYTE IMBALANCE [None]
  - GENERAL PHYSICAL HEALTH DETERIORATION [None]
  - MALIGNANT NEOPLASM PROGRESSION [None]
  - METASTASES TO CENTRAL NERVOUS SYSTEM [None]
  - NON-SMALL CELL LUNG CANCER [None]
  - RENAL FAILURE [None]
  - WEIGHT DECREASED [None]
